FAERS Safety Report 5297100-3 (Version None)
Quarter: 2007Q1

REPORT INFORMATION
  Report Type: 
  Country: None (occurrence: None)
  Receive Date: 20070201
  Receipt Date: 20061006
  Transmission Date: 20070707
  Serious: No
  Sender: FDA-Public Use
  Company Number: 2006PV022827

PATIENT
  Age: 53 Year
  Sex: Female
  Weight: 90.7194 kg

DRUGS (4)
  1. BYETTA [Suspect]
     Indication: DIABETES MELLITUS NON-INSULIN-DEPENDENT
     Dosage: SEE IMAGE
     Route: 058
     Dates: start: 20060101, end: 20060201
  2. BYETTA [Suspect]
     Indication: DIABETES MELLITUS NON-INSULIN-DEPENDENT
     Dosage: SEE IMAGE
     Route: 058
     Dates: start: 20060201
  3. METFORMIN HCL [Concomitant]
  4. AVANDAMET [Concomitant]

REACTIONS (11)
  - ANOREXIA [None]
  - BACK DISORDER [None]
  - CONDITION AGGRAVATED [None]
  - DECREASED APPETITE [None]
  - FATIGUE [None]
  - INCREASED APPETITE [None]
  - INJECTION SITE IRRITATION [None]
  - MUSCLE RIGIDITY [None]
  - NAUSEA [None]
  - VOMITING [None]
  - WEIGHT DECREASED [None]
